FAERS Safety Report 9521885 (Version 1)
Quarter: 2013Q3

REPORT INFORMATION
  Report Type: Spontaneous
  Country: AU (occurrence: AU)
  Receive Date: 20130913
  Receipt Date: 20130913
  Transmission Date: 20140515
  Serious: Yes (Other)
  Sender: FDA-Public Use
  Company Number: PHHY2013AU101221

PATIENT
  Sex: Female

DRUGS (1)
  1. RITALIN [Suspect]
     Dosage: 30 MG, TID
     Route: 048

REACTIONS (4)
  - Cardiac disorder [Unknown]
  - Cardiac murmur [Unknown]
  - Decreased appetite [Recovering/Resolving]
  - Incorrect dose administered [Unknown]
